FAERS Safety Report 9937013 (Version 1)
Quarter: 2014Q1

REPORT INFORMATION
  Report Type: Spontaneous
  Country: US (occurrence: None)
  Receive Date: 20140116
  Receipt Date: 20140116
  Transmission Date: 20141002
  Serious: Yes (Other)
  Sender: FDA-Public Use
  Company Number: 2013AP007527

PATIENT
  Age: 33 Year
  Sex: Male

DRUGS (8)
  1. OLANZAPINE ORALLY DISINTEGRATING TABLETS [Suspect]
     Indication: MANIA
     Route: 048
  2. OLANZAPINE ORALLY DISINTEGRATING TABLETS [Suspect]
     Indication: PSYCHOTIC DISORDER
     Route: 048
  3. LITHIUM [Concomitant]
  4. DIVALPROEX SODIUM [Concomitant]
  5. THIORIDAZINE [Concomitant]
  6. BUPROPION [Concomitant]
  7. LAMOTRIGINE [Concomitant]
  8. CLONAZEPAM [Concomitant]

REACTIONS (2)
  - Hypertriglyceridaemia [None]
  - Weight increased [None]
